FAERS Safety Report 18965747 (Version 1)
Quarter: 2021Q1

REPORT INFORMATION
  Report Type: Spontaneous
  Country: US (occurrence: US)
  Receive Date: 20210303
  Receipt Date: 20210303
  Transmission Date: 20210420
  Serious: No
  Sender: FDA-Public Use
  Company Number: US-ENDO PHARMACEUTICALS INC-2020-005254

PATIENT
  Age: 66 Year
  Sex: Female

DRUGS (1)
  1. XIAFLEX [Suspect]
     Active Substance: COLLAGENASE CLOSTRIDIUM HISTOLYTICUM
     Indication: DUPUYTREN^S CONTRACTURE
     Dosage: UNK
     Dates: start: 20200722

REACTIONS (3)
  - Peripheral swelling [Unknown]
  - Axillary pain [Unknown]
  - Joint swelling [Unknown]

NARRATIVE: CASE EVENT DATE: 202007
